FAERS Safety Report 6764518-9 (Version None)
Quarter: 2010Q2

REPORT INFORMATION
  Report Type: 
  Country: None (occurrence: None)
  Receive Date: 20100609
  Receipt Date: 20100426
  Transmission Date: 20101027
  Serious: No
  Sender: FDA-Public Use
  Company Number: 2010009946

PATIENT
  Age: 76 Year
  Sex: Female
  Weight: 63.5036 kg

DRUGS (6)
  1. CHILDREN'S ZYRTEC ALLERGY [Suspect]
     Indication: DRUG USE FOR UNKNOWN INDICATION
     Dosage: 1 TEASPOON ONCE DAILY, OTHER
  2. MONTELUKAST SODIUM [Concomitant]
  3. SIMVASTATIN [Concomitant]
  4. METOPROLOL TARTRATE [Concomitant]
  5. LEVOTHYROXINE SODIUM [Concomitant]
  6. PARACETAMOL (PARACETAMOL) [Concomitant]

REACTIONS (3)
  - ABDOMINAL DISCOMFORT [None]
  - INCORRECT ROUTE OF DRUG ADMINISTRATION [None]
  - WRONG DRUG ADMINISTERED [None]
